FAERS Safety Report 9159929 (Version 1)
Quarter: 2013Q1

REPORT INFORMATION
  Report Type: Spontaneous
  Country: US (occurrence: None)
  Receive Date: 20130214
  Receipt Date: 20130214
  Transmission Date: 20140127
  Serious: Yes (Other)
  Sender: FDA-Public Use
  Company Number: 1597256

PATIENT
  Age: 80 Year
  Sex: Male

DRUGS (9)
  1. CARBOPLATIN [Suspect]
     Indication: DISEASE RECURRENCE
  2. RITUXAN [Suspect]
     Indication: ACUTE LYMPHOCYTIC LEUKAEMIA
  3. IFOSFAMIDE [Suspect]
     Indication: DISEASE RECURRENCE
  4. ETOPOSIDE [Suspect]
     Indication: DISEASE RECURRENCE
  5. CYCLOPHOSPHAMIDE [Suspect]
     Indication: DISEASE RECURRENCE
  6. DOXORUBICIN [Suspect]
     Indication: DISEASE RECURRENCE
  7. ONCOVIN [Suspect]
     Indication: DISEASE RECURRENCE
  8. PREDNISONE [Suspect]
     Indication: DISEASE RECURRENCE
  9. THERAPEUTIC RADIOPHARMACEUTICALS [Suspect]
     Indication: DISEASE RECURRENCE

REACTIONS (1)
  - Bone marrow failure [None]
